FAERS Safety Report 9191479 (Version 3)
Quarter: 2014Q1

REPORT INFORMATION
  Report Type: Spontaneous
  Country: US (occurrence: US)
  Receive Date: 20130326
  Receipt Date: 20140307
  Transmission Date: 20141002
  Serious: Yes (Death, Hospitalization)
  Sender: FDA-Public Use
  Company Number: US-B.I. PHARMACEUTICALS,INC./RIDGEFIELD-2013-BI-08031BP

PATIENT
  Age: 66 Year
  Sex: Male
  Weight: 77.11 kg

DRUGS (13)
  1. PRADAXA [Suspect]
     Indication: ANTICOAGULANT THERAPY
     Dosage: 300 MG
     Route: 065
     Dates: start: 20110324, end: 20110330
  2. LASIX [Concomitant]
     Dosage: 40 MG
     Route: 065
  3. GLIPIZIDE [Concomitant]
     Dosage: 10 MG
     Route: 065
  4. COREG [Concomitant]
     Dosage: 25 MG
     Route: 065
  5. ALLOPURINOL [Concomitant]
     Dosage: 100 MG
     Route: 065
  6. AMIODARONE HYDROCHLORIDE [Concomitant]
     Dosage: 200 MG
     Route: 048
  7. FERROUS SULFATE [Concomitant]
     Dosage: 325 MG
     Route: 065
  8. FISH OIL [Concomitant]
     Dosage: 2400 MG
     Route: 065
  9. SIMVASTATIN [Concomitant]
     Dosage: 20 MG
     Route: 065
  10. GEMFIBROZIL [Concomitant]
     Dosage: 600 MG
     Route: 065
  11. LEVOTHYROXINE SODIUM [Concomitant]
     Dosage: 0.1 MG
     Route: 065
  12. ONGLYZA [Concomitant]
     Dosage: 2.5 MG
     Route: 065
  13. FUROSEMIDE [Concomitant]
     Route: 065

REACTIONS (4)
  - Cardiac arrest [Fatal]
  - Gastrointestinal haemorrhage [Fatal]
  - Anaemia [Unknown]
  - Renal haemorrhage [Unknown]
